FAERS Safety Report 11720255 (Version 1)
Quarter: 2015Q4

REPORT INFORMATION
  Report Type: Spontaneous
  Country: US (occurrence: US)
  Receive Date: 20151110
  Receipt Date: 20151110
  Transmission Date: 20160304
  Serious: Yes (Hospitalization)
  Sender: FDA-Public Use
  Company Number: US-ENDO PHARMACEUTICALS INC.-2015-003701

PATIENT
  Age: 0 Year
  Sex: Male

DRUGS (4)
  1. PREDNISONE TABLETS [Suspect]
     Active Substance: PREDNISONE
     Indication: FOETAL EXPOSURE DURING PREGNANCY
     Dosage: 5-20MG
     Route: 064
     Dates: start: 201502, end: 20150930
  2. AZATHIOPRINE. [Suspect]
     Active Substance: AZATHIOPRINE
     Indication: FOETAL EXPOSURE DURING PREGNANCY
     Route: 064
     Dates: start: 20150320, end: 20150928
  3. CHLOROQUINE. [Suspect]
     Active Substance: CHLOROQUINE
     Indication: FOETAL EXPOSURE DURING PREGNANCY
     Dosage: 125-250MG
     Route: 064
     Dates: start: 201502, end: 20150903
  4. CELLCEPT [Suspect]
     Active Substance: MYCOPHENOLATE MOFETIL\MYCOPHENOLATE MOFETIL HYDROCHLORIDE
     Indication: FOETAL EXPOSURE DURING PREGNANCY
     Route: 064
     Dates: start: 201502, end: 20151003

REACTIONS (4)
  - Escherichia sepsis [Unknown]
  - Meningitis [Unknown]
  - Premature baby [Recovered/Resolved]
  - Foetal exposure during pregnancy [Recovered/Resolved]

NARRATIVE: CASE EVENT DATE: 2015
